FAERS Safety Report 4659786-3 (Version None)
Quarter: 2005Q2

REPORT INFORMATION
  Report Type: 
  Country: None (occurrence: None)
  Receive Date: 20050512
  Receipt Date: 20050504
  Transmission Date: 20051028
  Serious: Yes (Other)
  Sender: FDA-Public Use
  Company Number: CA-JNJFOC-20050403217

PATIENT
  Sex: Female
  Weight: 96.62 kg

DRUGS (7)
  1. REMICADE [Suspect]
     Indication: RHEUMATOID ARTHRITIS
     Route: 042
  2. METHOTREXATE [Concomitant]
  3. ORUDIS [Concomitant]
  4. DIAZIDE [Concomitant]
  5. RANITIDINE [Concomitant]
  6. HYDROCHLOROTHIAZIDE [Concomitant]
     Indication: PROPHYLAXIS
     Route: 049
  7. COVERSYL [Concomitant]
     Indication: PROPHYLAXIS
     Route: 049

REACTIONS (1)
  - RENAL NEOPLASM [None]
